FAERS Safety Report 18130118 (Version 1)
Quarter: 2020Q3

REPORT INFORMATION
  Report Type: Spontaneous
  Country: US (occurrence: US)
  Receive Date: 20200808
  Receipt Date: 20200808
  Transmission Date: 20201103
  Serious: No
  Sender: FDA-Public Use
  Company Number: None

PATIENT

DRUGS (1)
  1. 75% ALCOHOL DISINFECTANT ANTIBACTERIAL HEALTH GUARD [Suspect]
     Active Substance: ALCOHOL
     Indication: COVID-19 PROPHYLAXIS

REACTIONS (1)
  - Physical product label issue [None]

NARRATIVE: CASE EVENT DATE: 20200807
